FAERS Safety Report 4519833-6 (Version None)
Quarter: 2004Q4

REPORT INFORMATION
  Report Type: 
  Country: None (occurrence: None)
  Receive Date: 20041207
  Receipt Date: 20041202
  Transmission Date: 20050328
  Serious: Yes (Death)
  Sender: FDA-Public Use
  Company Number: PHBS2004GR16194

PATIENT
  Age: 57 Year
  Sex: Female

DRUGS (3)
  1. AZATHIOPRINE [Concomitant]
  2. STEROIDS NOS [Concomitant]
  3. CYCLOSPORINE [Suspect]
     Indication: RENAL TRANSPLANT
     Route: 065

REACTIONS (10)
  - ARTERIOVENOUS GRAFT SITE COMPLICATION [None]
  - DYSPNOEA [None]
  - LUNG INFILTRATION [None]
  - MALIGNANT MELANOMA OF SITES OTHER THAN SKIN [None]
  - METASTATIC MALIGNANT MELANOMA [None]
  - NEPHRECTOMY [None]
  - PLEURAL EFFUSION [None]
  - RENAL MASS [None]
  - SKIN LESION EXCISION [None]
  - SKIN NODULE [None]
